FAERS Safety Report 24131462 (Version 1)
Quarter: 2024Q3

REPORT INFORMATION
  Report Type: Report from Study
  Country: ES (occurrence: ES)
  Receive Date: 20240724
  Receipt Date: 20240724
  Transmission Date: 20241017
  Serious: Yes (Hospitalization)
  Sender: TEVA
  Company Number: None

PATIENT
  Age: 76 Year
  Sex: Female

DRUGS (7)
  1. MIRTAZAPINE [Suspect]
     Active Substance: MIRTAZAPINE
     Indication: Product used for unknown indication
     Route: 065
     Dates: start: 20240403
  2. LEVOTHYROXINE SODIUM [Concomitant]
     Active Substance: LEVOTHYROXINE SODIUM
     Indication: Product used for unknown indication
     Dosage: 100 TABLETS
     Route: 065
     Dates: start: 20140805
  3. TROXERUTIN [Concomitant]
     Active Substance: TROXERUTIN
     Indication: Product used for unknown indication
     Dosage: TROXERUTINA (1733A)
     Route: 065
     Dates: start: 20160805
  4. OMEPRAZOLE [Concomitant]
     Active Substance: OMEPRAZOLE
     Indication: Product used for unknown indication
     Dosage: OMEPRAZOL (2141A)
     Route: 065
     Dates: start: 20140805
  5. VENLAFAXINE HYDROCHLORIDE [Suspect]
     Active Substance: VENLAFAXINE HYDROCHLORIDE
     Indication: Product used for unknown indication
     Dosage: VENLABRAIN RETARD, 30 TABLETS
     Route: 065
     Dates: start: 20240229
  6. FENOFIBRATE [Concomitant]
     Active Substance: FENOFIBRATE
     Indication: Product used for unknown indication
     Dosage: FENOFIBRATO (921A)
     Route: 065
     Dates: start: 20140805, end: 20240517
  7. CLORAZEPATE DIPOTASSIUM [Concomitant]
     Active Substance: CLORAZEPATE DIPOTASSIUM
     Indication: Product used for unknown indication
     Dosage: 30 CAPSULES
     Route: 065
     Dates: start: 20240321

REACTIONS (2)
  - Bradyphrenia [Recovered/Resolved]
  - Hypokinetic dysarthria [Recovering/Resolving]

NARRATIVE: CASE EVENT DATE: 20240401
